FAERS Safety Report 7568734-8 (Version None)
Quarter: 2011Q2

REPORT INFORMATION
  Report Type: 
  Country: None (occurrence: None)
  Receive Date: 20110623
  Receipt Date: 20110621
  Transmission Date: 20111010
  Serious: Yes (Hospitalization, Disabling, Other)
  Sender: FDA-Public Use
  Company Number: US-MERCK-1009USA04026

PATIENT
  Age: 45 Year
  Sex: Female
  Weight: 70 kg

DRUGS (2)
  1. FOSAMAX [Suspect]
     Indication: OSTEOPOROSIS
     Route: 048
     Dates: start: 19910101, end: 20060101
  2. VITAMINS (UNSPECIFIED) [Concomitant]
     Route: 065

REACTIONS (26)
  - ARTHROPATHY [None]
  - BREAST CANCER [None]
  - INTERVERTEBRAL DISC DISORDER [None]
  - DRUG HYPERSENSITIVITY [None]
  - FOOT DEFORMITY [None]
  - BACK PAIN [None]
  - FEMUR FRACTURE [None]
  - FRACTURE NONUNION [None]
  - ANXIETY [None]
  - MYOFASCIAL SPASM [None]
  - VENOUS INSUFFICIENCY [None]
  - DERMATITIS [None]
  - HIP FRACTURE [None]
  - ENDOMETRIAL CANCER [None]
  - TOOTH DISORDER [None]
  - PAIN IN EXTREMITY [None]
  - LEUKOPENIA [None]
  - GAIT DISTURBANCE [None]
  - OSTEOARTHRITIS [None]
  - ANAEMIA POSTOPERATIVE [None]
  - UTERINE DISORDER [None]
  - SCIATICA [None]
  - RADICULAR PAIN [None]
  - TOOTH FRACTURE [None]
  - FALL [None]
  - DEPRESSION [None]
